FAERS Safety Report 12839975 (Version 1)
Quarter: 2016Q4

REPORT INFORMATION
  Report Type: Spontaneous
  Country: PL (occurrence: PL)
  Receive Date: 20161012
  Receipt Date: 20161012
  Transmission Date: 20170207
  Serious: Yes (Hospitalization, Other)
  Sender: FDA-Public Use
  Company Number: PL-REGENERON PHARMACEUTICALS, INC.-2016-22083

PATIENT

DRUGS (4)
  1. EYLEA [Suspect]
     Active Substance: AFLIBERCEPT
     Indication: PRODUCT USED FOR UNKNOWN INDICATION
     Dosage: 2 INJECTIONS RECEIVED IN THE LAST 6 MONTHS, MOST RECENT ON 06-SEP-2016
     Route: 031
  2. OFTAQUIX [Concomitant]
     Active Substance: LEVOFLOXACIN
     Indication: PRODUCT USED FOR UNKNOWN INDICATION
     Dosage: UNK
     Dates: start: 20160903, end: 20160909
  3. EYLEA [Suspect]
     Active Substance: AFLIBERCEPT
     Dosage: 2 INJECTIONS RECEIVED IN THE LAST 6 MONTHS, MOST RECENT ON 06-SEP-2016
     Route: 031
     Dates: start: 20160906, end: 20160906
  4. POVIDONE [Concomitant]
     Active Substance: POVIDONE
     Indication: PRODUCT USED FOR UNKNOWN INDICATION

REACTIONS (2)
  - Multiple use of single-use product [Unknown]
  - Endophthalmitis [Unknown]

NARRATIVE: CASE EVENT DATE: 20160906
